FAERS Safety Report 18327091 (Version 3)
Quarter: 2021Q1

REPORT INFORMATION
  Report Type: Spontaneous
  Country: JP (occurrence: JP)
  Receive Date: 20200929
  Receipt Date: 20210308
  Transmission Date: 20210419
  Serious: Yes (Other)
  Sender: FDA-Public Use
  Company Number: JP-JNJFOC-20200935742

PATIENT
  Age: 5 Decade
  Sex: Male

DRUGS (19)
  1. EMTRICITABINE/TENOFOVIR DISOPROXIL FUMARATE [Concomitant]
     Active Substance: EMTRICITABINE\TENOFOVIR DISOPROXIL FUMARATE
     Dosage: DOSE UNKNOWN
     Route: 048
     Dates: start: 20080205
  2. RITONAVIR. [Concomitant]
     Active Substance: RITONAVIR
     Dosage: DOSE UNKNOWN
     Route: 048
     Dates: start: 201311, end: 2014
  3. RITONAVIR. [Concomitant]
     Active Substance: RITONAVIR
     Dosage: DOSE UNKNOWN
     Route: 048
  4. RALTEGRAVIR POTASSIUM [Concomitant]
     Active Substance: RALTEGRAVIR POTASSIUM
     Dosage: DOSE UNKNOWN
     Route: 048
     Dates: start: 201301
  5. PREZISTA [Suspect]
     Active Substance: DARUNAVIR ETHANOLATE
     Dosage: DOSE UNKNOWN
     Route: 048
     Dates: start: 20120925, end: 2013
  6. PREZISTA [Suspect]
     Active Substance: DARUNAVIR ETHANOLATE
     Dosage: DOSE UNKNOWN
     Route: 048
     Dates: start: 201311, end: 2014
  7. PREZISTA [Suspect]
     Active Substance: DARUNAVIR ETHANOLATE
     Dosage: DOSE UNKNOWN
     Route: 048
     Dates: start: 20141226
  8. LAMIVUDINE/ABACAVIR SULFATE [Concomitant]
     Active Substance: ABACAVIR SULFATE\LAMIVUDINE
     Dosage: DOSE UNKNOWN
     Route: 048
     Dates: start: 201301, end: 2013
  9. LAMIVUDINE/ABACAVIR SULFATE [Concomitant]
     Active Substance: ABACAVIR SULFATE\LAMIVUDINE
     Dosage: DOSE UNKNOWN
     Route: 048
     Dates: start: 20141226, end: 2016
  10. PREZISTA [Suspect]
     Active Substance: DARUNAVIR ETHANOLATE
     Dosage: DOSE UNKNOWN
     Route: 048
     Dates: start: 20150917, end: 2016
  11. LAMIVUDINE/ABACAVIR SULFATE [Concomitant]
     Active Substance: ABACAVIR SULFATE\LAMIVUDINE
     Dosage: DOSE UNKNOWN
     Route: 048
     Dates: start: 2009, end: 2011
  12. LAMIVUDINE/ABACAVIR SULFATE [Concomitant]
     Active Substance: ABACAVIR SULFATE\LAMIVUDINE
     Dosage: DOSE UNKNOWN
     Route: 048
  13. RITONAVIR. [Concomitant]
     Active Substance: RITONAVIR
     Dosage: DOSE UNKNOWN
     Route: 048
     Dates: start: 20080205, end: 2011
  14. LAMIVUDINE/ABACAVIR SULFATE [Concomitant]
     Active Substance: ABACAVIR SULFATE\LAMIVUDINE
     Dosage: DOSE UNKNOWN
     Route: 048
     Dates: start: 201311, end: 2014
  15. RITONAVIR. [Concomitant]
     Active Substance: RITONAVIR
     Dosage: DOSE UNKNOWN
     Route: 048
     Dates: start: 20120925, end: 2013
  16. PREZISTA [Suspect]
     Active Substance: DARUNAVIR ETHANOLATE
     Indication: PRODUCT USED FOR UNKNOWN INDICATION
     Dosage: DOSE UNKNOWN
     Route: 048
     Dates: start: 20080205, end: 2011
  17. RITONAVIR. [Concomitant]
     Active Substance: RITONAVIR
     Dosage: DOSE UNKNOWN
     Route: 048
     Dates: start: 20141226
  18. RITONAVIR. [Concomitant]
     Active Substance: RITONAVIR
     Dosage: DOSE UNKNOWN
     Route: 048
     Dates: end: 2016
  19. LAMIVUDINE/ABACAVIR SULFATE [Concomitant]
     Active Substance: ABACAVIR SULFATE\LAMIVUDINE
     Dosage: DOSE UNKNOWN
     Route: 048
     Dates: start: 20120925, end: 2013

REACTIONS (2)
  - Pneumocystis jirovecii pneumonia [Unknown]
  - Organising pneumonia [Unknown]

NARRATIVE: CASE EVENT DATE: 201411
